FAERS Safety Report 9841443 (Version 2)
Quarter: 2014Q1

REPORT INFORMATION
  Report Type: Spontaneous
  Country: JP (occurrence: JP)
  Receive Date: 20140124
  Receipt Date: 20140131
  Transmission Date: 20141002
  Serious: Yes (Other)
  Sender: FDA-Public Use
  Company Number: JP-ASTRAZENECA-2014SE03768

PATIENT
  Age: 79 Year
  Sex: Female

DRUGS (3)
  1. CARBOCAIN [Suspect]
     Route: 008
  2. DEXAMETHASONE [Concomitant]
     Dosage: 4 MG (NUMBER OF SEPARATE DOSAGES UNKNOWN)
     Route: 065
  3. BAYASPIRIN [Concomitant]
     Dosage: DOSE UNKNOWN
     Route: 048

REACTIONS (1)
  - Extradural haematoma [Recovering/Resolving]
